FAERS Safety Report 7618722-8 (Version None)
Quarter: 2011Q3

REPORT INFORMATION
  Report Type: 
  Country: None (occurrence: None)
  Receive Date: 20110718
  Receipt Date: 20110708
  Transmission Date: 20111222
  Serious: No
  Sender: FDA-Public Use
  Company Number: US-B.I. PHARMACEUTICALS,INC./RIDGEFIELD-2011-BP-17464BP

PATIENT
  Age: 77 Year
  Sex: Female

DRUGS (2)
  1. ASPIRIN [Concomitant]
     Dosage: 81 MG
     Route: 048
  2. PRADAXA [Suspect]
     Dosage: 300 MG

REACTIONS (3)
  - RASH [None]
  - ECCHYMOSIS [None]
  - JOINT SWELLING [None]
